FAERS Safety Report 22003448 (Version 1)
Quarter: 2023Q1

REPORT INFORMATION
  Report Type: Spontaneous
  Country: US (occurrence: US)
  Receive Date: 20230217
  Receipt Date: 20230217
  Transmission Date: 20230417
  Serious: No
  Sender: FDA-Public Use
  Company Number: US-AUROBINDO-AUR-APL-2022-052362

PATIENT
  Sex: Male

DRUGS (1)
  1. RIZATRIPTAN BENZOATE [Suspect]
     Active Substance: RIZATRIPTAN BENZOATE
     Indication: Migraine
     Dosage: UNK
     Route: 048
     Dates: start: 20221109

REACTIONS (5)
  - Hypoaesthesia oral [Recovering/Resolving]
  - Product taste abnormal [Recovering/Resolving]
  - Pharyngeal swelling [Recovering/Resolving]
  - Throat tightness [Recovering/Resolving]
  - Drug ineffective [Unknown]

NARRATIVE: CASE EVENT DATE: 20221129
